FAERS Safety Report 20281908 (Version 3)
Quarter: 2022Q1

REPORT INFORMATION
  Report Type: Spontaneous
  Country: US (occurrence: US)
  Receive Date: 20220103
  Receipt Date: 20220315
  Transmission Date: 20220423
  Serious: No
  Sender: FDA-Public Use
  Company Number: US-LUNDBECK-DKLU3041934

PATIENT
  Age: 73 Year
  Sex: Female

DRUGS (2)
  1. VYEPTI [Suspect]
     Active Substance: EPTINEZUMAB-JJMR
     Indication: Migraine
     Route: 041
     Dates: start: 20210803
  2. VYEPTI [Suspect]
     Active Substance: EPTINEZUMAB-JJMR
     Route: 065
     Dates: start: 20211109

REACTIONS (7)
  - Migraine [Unknown]
  - Headache [Unknown]
  - Apathy [Unknown]
  - Irritable bowel syndrome [Unknown]
  - Feeling abnormal [Unknown]
  - Drug ineffective [Unknown]
  - Therapeutic response shortened [Unknown]
